FAERS Safety Report 9734851 (Version 2)
Quarter: 2014Q1

REPORT INFORMATION
  Report Type: Spontaneous
  Country: US (occurrence: US)
  Receive Date: 20131206
  Receipt Date: 20140113
  Transmission Date: 20141002
  Serious: No
  Sender: FDA-Public Use
  Company Number: US-JNJFOC-20131115716

PATIENT
  Age: 24 Year
  Sex: Male

DRUGS (6)
  1. INVEGA SUSTENNA [Suspect]
     Indication: SCHIZOPHRENIA
     Route: 030
     Dates: start: 20131119
  2. INVEGA SUSTENNA [Suspect]
     Indication: SCHIZOPHRENIA
     Route: 030
     Dates: start: 20131223
  3. RISPERDAL [Concomitant]
     Indication: BIPOLAR DISORDER
     Route: 048
     Dates: start: 20131113
  4. RISPERDAL [Concomitant]
     Indication: SCHIZOPHRENIA
     Route: 048
     Dates: start: 20131113
  5. VISTARIL [Concomitant]
     Indication: ANXIETY
     Route: 065
     Dates: start: 20131118
  6. RISPERDAL CONSTA [Concomitant]
     Indication: BIPOLAR DISORDER
     Route: 030

REACTIONS (1)
  - Injection site reaction [Recovering/Resolving]
